FAERS Safety Report 5275527-3 (Version None)
Quarter: 2007Q1

REPORT INFORMATION
  Report Type: 
  Country: None (occurrence: None)
  Receive Date: 20070326
  Receipt Date: 20070312
  Transmission Date: 20070707
  Serious: Yes (Hospitalization)
  Sender: FDA-Public Use
  Company Number: GBWYE982112MAR07

PATIENT
  Sex: Male

DRUGS (4)
  1. ENBREL [Suspect]
     Indication: PSORIASIS
     Route: 058
     Dates: start: 20070201, end: 20070301
  2. ENBREL [Suspect]
     Route: 058
     Dates: start: 20070301
  3. CYCLOSPORINE [Concomitant]
     Indication: PSORIASIS
     Dates: end: 20070201
  4. CYCLOSPORINE [Concomitant]
     Dosage: UNKNOWN
     Dates: start: 20070301

REACTIONS (3)
  - CONDITION AGGRAVATED [None]
  - DRUG INEFFECTIVE [None]
  - PSORIASIS [None]
